FAERS Safety Report 25224296 (Version 1)
Quarter: 2025Q2

REPORT INFORMATION
  Report Type: Spontaneous
  Country: CA (occurrence: CA)
  Receive Date: 20250422
  Receipt Date: 20250422
  Transmission Date: 20250716
  Serious: Yes (Other)
  Sender: TEVA
  Company Number: CA-TEVA-VS-3324286

PATIENT
  Age: 57 Year
  Sex: Male

DRUGS (8)
  1. BORTEZOMIB [Suspect]
     Active Substance: BORTEZOMIB
     Indication: C3 glomerulopathy
     Route: 065
  2. MYCOPHENOLATE SODIUM [Concomitant]
     Active Substance: MYCOPHENOLATE SODIUM
     Indication: Product used for unknown indication
     Route: 065
  3. CELLCEPT [Concomitant]
     Active Substance: MYCOPHENOLATE MOFETIL
     Indication: C3 glomerulopathy
     Route: 065
  4. TACROLIMUS [Concomitant]
     Active Substance: TACROLIMUS
     Indication: Product used for unknown indication
     Route: 065
  5. PREDNISONE [Concomitant]
     Active Substance: PREDNISONE
     Indication: C3 glomerulopathy
     Route: 065
  6. PREDNISONE [Concomitant]
     Active Substance: PREDNISONE
     Indication: C3 glomerulopathy
     Route: 065
  7. BASILIXIMAB [Concomitant]
     Active Substance: BASILIXIMAB
     Indication: Product used for unknown indication
     Route: 065
  8. CYCLOPHOSPHAMIDE [Suspect]
     Active Substance: CYCLOPHOSPHAMIDE
     Indication: C3 glomerulopathy
     Route: 065

REACTIONS (2)
  - Polyomavirus viraemia [Unknown]
  - Neuropathy peripheral [Unknown]
